FAERS Safety Report 4886022-5 (Version None)
Quarter: 2006Q1

REPORT INFORMATION
  Report Type: 
  Country: None (occurrence: None)
  Receive Date: 20060117
  Receipt Date: 20060104
  Transmission Date: 20060701
  Serious: Yes (Death)
  Sender: FDA-Public Use
  Company Number: MSER20060002

PATIENT
  Age: 48 Year
  Sex: Female

DRUGS (1)
  1. MORPHINE [Suspect]
     Dosage: IV
     Route: 042
     Dates: start: 20040101, end: 20040101

REACTIONS (16)
  - CONTUSION [None]
  - DEPRESSED LEVEL OF CONSCIOUSNESS [None]
  - DRUG ABUSER [None]
  - DYSPNOEA [None]
  - GLOTTIS CARCINOMA [None]
  - HISTOLOGY ABNORMAL [None]
  - HYPOTONIA [None]
  - LARYNGEAL ULCERATION [None]
  - LARYNGITIS [None]
  - LIP AND/OR ORAL CAVITY CANCER RECURRENT [None]
  - OBSTRUCTIVE AIRWAYS DISORDER [None]
  - PHARYNGEAL STENOSIS [None]
  - PHARYNGOLARYNGEAL PAIN [None]
  - PULMONARY GRANULOMA [None]
  - RESPIRATORY DEPRESSION [None]
  - TRACHEOBRONCHITIS [None]
